FAERS Safety Report 18450037 (Version 2)
Quarter: 2021Q4

REPORT INFORMATION
  Report Type: Spontaneous
  Country: US (occurrence: US)
  Receive Date: 20201031
  Receipt Date: 20211227
  Transmission Date: 20220303
  Serious: Yes (Death, Other)
  Sender: FDA-Public Use
  Company Number: US-NAPPMUNDI-USA-2020-0153688

PATIENT
  Age: 34 Year
  Sex: Male

DRUGS (15)
  1. OXYCONTIN [Suspect]
     Active Substance: OXYCODONE HYDROCHLORIDE
     Indication: Spinal fracture
     Dosage: 10 MG, UNK
     Route: 048
  2. OXYCONTIN [Suspect]
     Active Substance: OXYCODONE HYDROCHLORIDE
     Indication: Back injury
  3. OXYCODONE HYDROCHLORIDE [Suspect]
     Active Substance: OXYCODONE HYDROCHLORIDE
     Indication: Spinal fracture
     Dosage: 10 MG, UNK
     Route: 048
  4. OXYCODONE HYDROCHLORIDE [Suspect]
     Active Substance: OXYCODONE HYDROCHLORIDE
     Indication: Back injury
  5. DULOXETINE HYDROCHLORIDE [Concomitant]
     Active Substance: DULOXETINE HYDROCHLORIDE
     Indication: Spinal fracture
     Dosage: 30 MG, UNK
     Route: 065
  6. DULOXETINE HYDROCHLORIDE [Concomitant]
     Active Substance: DULOXETINE HYDROCHLORIDE
     Indication: Back injury
  7. LIDOCAINE                          /00033402/ [Concomitant]
     Indication: Spinal fracture
     Dosage: UNKNOWN
     Route: 065
  8. LIDOCAINE                          /00033402/ [Concomitant]
     Indication: Back injury
  9. BACLOFEN [Concomitant]
     Active Substance: BACLOFEN
     Indication: Spinal fracture
     Dosage: 10 MG, UNK
     Route: 065
  10. BACLOFEN [Concomitant]
     Active Substance: BACLOFEN
     Indication: Back injury
  11. IBUPROFEN [Concomitant]
     Active Substance: IBUPROFEN
     Indication: Spinal fracture
     Dosage: UNKNOWN
     Route: 065
  12. IBUPROFEN [Concomitant]
     Active Substance: IBUPROFEN
     Indication: Back injury
  13. PREGABALIN [Concomitant]
     Active Substance: PREGABALIN
     Indication: Spinal fracture
     Dosage: 75 MG, UNK
     Route: 065
  14. PREGABALIN [Concomitant]
     Active Substance: PREGABALIN
     Indication: Back injury
  15. NEOMYCIN [Concomitant]
     Active Substance: NEOMYCIN
     Indication: Back injury
     Dosage: UNKNOWN
     Route: 065

REACTIONS (2)
  - Toxicity to various agents [Fatal]
  - Drug dependence [Unknown]

NARRATIVE: CASE EVENT DATE: 20170310
